FAERS Safety Report 8382632-1 (Version None)
Quarter: 2012Q2

REPORT INFORMATION
  Report Type: 
  Country: None (occurrence: None)
  Receive Date: 20120524
  Receipt Date: 20120514
  Transmission Date: 20120825
  Serious: Yes (Hospitalization)
  Sender: FDA-Public Use
  Company Number: US-ELI_LILLY_AND_COMPANY-US201205005494

PATIENT
  Age: 87 Year
  Sex: Female

DRUGS (1)
  1. FORTEO [Suspect]
     Dosage: 20 UG, QD
     Dates: start: 20110201

REACTIONS (4)
  - BLOOD URINE PRESENT [None]
  - BLOOD ELECTROLYTES ABNORMAL [None]
  - FALL [None]
  - URINARY TRACT INFECTION [None]
